FAERS Safety Report 5640883-0 (Version None)
Quarter: 2008Q1

REPORT INFORMATION
  Report Type: 
  Country: None (occurrence: None)
  Receive Date: 20080227
  Receipt Date: 20080221
  Transmission Date: 20080703
  Serious: Yes (Other)
  Sender: FDA-Public Use
  Company Number: B0504171A

PATIENT
  Age: 21 Year
  Sex: Male

DRUGS (3)
  1. RELENZA [Suspect]
     Indication: INFLUENZA
     Dosage: 10MG TWICE PER DAY
     Route: 055
     Dates: start: 20080116, end: 20080117
  2. CODEINE PHOSPHATE [Concomitant]
     Indication: COUGH
     Dosage: 3G PER DAY
     Route: 048
     Dates: start: 20080116
  3. MUCODYNE [Concomitant]
     Indication: PRODUCTIVE COUGH
     Route: 048
     Dates: start: 20080116

REACTIONS (2)
  - ABNORMAL BEHAVIOUR [None]
  - MALAISE [None]
